FAERS Safety Report 5987590-2 (Version None)
Quarter: 2008Q4

REPORT INFORMATION
  Report Type: 
  Country: None (occurrence: None)
  Receive Date: 20081128
  Receipt Date: 20081021
  Transmission Date: 20090506
  Serious: Yes (Hospitalization)
  Sender: FDA-Public Use
  Company Number: KV200800087

PATIENT
  Age: 23 Year
  Sex: Female
  Weight: 46.3 kg

DRUGS (4)
  1. DEXTROAMPHETAMINE SULFATE [Suspect]
     Indication: ATTENTION DEFICIT/HYPERACTIVITY DISORDER
     Dosage: 5 MG, BID, ORAL : 10 MG, BID, ORAL
     Route: 048
     Dates: start: 20060101, end: 20080101
  2. DEXTROAMPHETAMINE SULFATE [Suspect]
     Indication: ATTENTION DEFICIT/HYPERACTIVITY DISORDER
     Dosage: 5 MG, BID, ORAL : 10 MG, BID, ORAL
     Route: 048
     Dates: start: 20060101, end: 20080101
  3. XANAX [Concomitant]
  4. ALLEGRA D (FEXOFENADINE HYDROCHLORIDE, PSEUDOEPHEDRINE HYDROCHLORIDE) [Concomitant]

REACTIONS (6)
  - DECREASED APPETITE [None]
  - HEADACHE [None]
  - NAUSEA [None]
  - PALPITATIONS [None]
  - VISION BLURRED [None]
  - WEIGHT DECREASED [None]
